FAERS Safety Report 19757988 (Version 1)
Quarter: 2021Q3

REPORT INFORMATION
  Report Type: Spontaneous
  Country: US (occurrence: US)
  Receive Date: 20210828
  Receipt Date: 20210828
  Transmission Date: 20211014
  Serious: No
  Sender: FDA-Public Use
  Company Number: US-JNJFOC-20210844051

PATIENT
  Sex: Female

DRUGS (1)
  1. WOMENS ROGAINE UNSCENTED [Suspect]
     Active Substance: MINOXIDIL
     Indication: HAIR GROWTH ABNORMAL
     Dosage: APPLY IT FULLY ALL OVER HAIR, FINISH THE BOTTLE LESS THAN A MONTH ONCE A DAY
     Route: 061
     Dates: start: 20210715

REACTIONS (3)
  - Incorrect dose administered [Unknown]
  - Hair growth abnormal [Unknown]
  - Product administered at inappropriate site [Unknown]

NARRATIVE: CASE EVENT DATE: 20210715
